FAERS Safety Report 6121293-9 (Version None)
Quarter: 2009Q1

REPORT INFORMATION
  Report Type: 
  Country: None (occurrence: None)
  Receive Date: 20090313
  Receipt Date: 20090227
  Transmission Date: 20090719
  Serious: Yes (Hospitalization)
  Sender: FDA-Public Use
  Company Number: 2008001141

PATIENT
  Age: 49 Year
  Sex: Male
  Weight: 77 kg

DRUGS (5)
  1. ERLOTINIB (ERLOTINIB) (TABLET) (ERLOTINIB) [Suspect]
     Indication: LUNG NEOPLASM MALIGNANT
     Dosage: (150 MG, QD), ORAL
     Route: 048
     Dates: start: 20080417
  2. PEMETREXED (PEMETREXED) (INJECTION FOR INFUSION) [Suspect]
     Indication: LUNG NEOPLASM MALIGNANT
     Dosage: (948 MG, Q3W), INTRAVENOUS
     Route: 042
     Dates: start: 20080417
  3. VITAMIN B12 [Concomitant]
  4. FOLIC ACID [Concomitant]
  5. DEXAMETHASONE TAB [Concomitant]

REACTIONS (1)
  - FEBRILE NEUTROPENIA [None]
